FAERS Safety Report 13267118 (Version 1)
Quarter: 2017Q1

REPORT INFORMATION
  Report Type: Spontaneous
  Country: US (occurrence: US)
  Receive Date: 20170223
  Receipt Date: 20170223
  Transmission Date: 20170428
  Serious: Yes (Life-Threatening)
  Sender: FDA-Public Use
  Company Number: None

PATIENT
  Age: 37 Year
  Sex: Male
  Weight: 92.25 kg

DRUGS (2)
  1. LEXAPRO [Suspect]
     Active Substance: ESCITALOPRAM OXALATE
     Indication: BORDERLINE PERSONALITY DISORDER
     Dosage: ?          QUANTITY:1 TABLET(S);?
     Route: 048
     Dates: start: 20170125, end: 20170222
  2. BUSPAR [Suspect]
     Active Substance: BUSPIRONE HYDROCHLORIDE

REACTIONS (9)
  - Paraesthesia [None]
  - Tremor [None]
  - Drug interaction [None]
  - Hyperhidrosis [None]
  - Abasia [None]
  - Muscle twitching [None]
  - Mydriasis [None]
  - Dyspnoea [None]
  - Visual impairment [None]

NARRATIVE: CASE EVENT DATE: 20170221
